FAERS Safety Report 5885048-2 (Version None)
Quarter: 2008Q3

REPORT INFORMATION
  Report Type: 
  Country: None (occurrence: None)
  Receive Date: 20080912
  Receipt Date: 20080829
  Transmission Date: 20090109
  Serious: Yes (Death)
  Sender: FDA-Public Use
  Company Number: SPV1-2008-01864

PATIENT
  Age: 15 Year
  Sex: Male

DRUGS (1)
  1. ADDERALL XR 10 [Suspect]
     Dosage: ORAL
     Route: 048

REACTIONS (2)
  - FALL [None]
  - HEAT STROKE [None]
